FAERS Safety Report 9525752 (Version 1)
Quarter: 2013Q1

REPORT INFORMATION
  Report Type: Spontaneous
  Country: US (occurrence: None)
  Receive Date: 20130314
  Receipt Date: 20130314
  Transmission Date: 20140127
  Serious: Yes (Other)
  Sender: FDA-Public Use
  Company Number: 1302USA003678

PATIENT
  Age: 66 Year
  Sex: Male

DRUGS (5)
  1. VICTRELIS [Suspect]
     Indication: HEPATITIS C
     Route: 048
     Dates: start: 20130126
  2. PEGASYS [Suspect]
     Indication: HEPATITIS C
  3. RIBASPHERE [Suspect]
     Indication: HEPATITIS C
  4. ASPIRIN [Concomitant]
  5. ASCORBIC ACID [Concomitant]

REACTIONS (5)
  - Injection site rash [None]
  - Insomnia [None]
  - Nausea [None]
  - Fatigue [None]
  - Dysgeusia [None]
